FAERS Safety Report 7849424-0 (Version None)
Quarter: 2011Q4

REPORT INFORMATION
  Report Type: 
  Country: None (occurrence: None)
  Receive Date: 20111024
  Receipt Date: 20111011
  Transmission Date: 20120403
  Serious: Yes (Hospitalization)
  Sender: FDA-Public Use
  Company Number: 124912

PATIENT
  Age: 21 Year
  Sex: Female
  Weight: 42 kg

DRUGS (2)
  1. ACETYLCYSTEINE [Suspect]
     Indication: LIVER INJURY
     Dosage: 10.8 G, 80 ML/H, 160 ML/H, 160 ML/H IV
     Route: 042
  2. ACETYLCYSTEINE [Suspect]
     Indication: PROPHYLAXIS
     Dosage: 10.8 G, 80 ML/H, 160 ML/H, 160 ML/H IV
     Route: 042

REACTIONS (12)
  - ABNORMAL BEHAVIOUR [None]
  - AGITATION [None]
  - STATUS EPILEPTICUS [None]
  - OVERDOSE [None]
  - BRAIN OEDEMA [None]
  - BRAIN HERNIATION [None]
  - MEDICATION ERROR [None]
  - CONVULSION [None]
  - ALANINE AMINOTRANSFERASE INCREASED [None]
  - MYDRIASIS [None]
  - SLUGGISHNESS [None]
  - NEUROLOGICAL DECOMPENSATION [None]
